FAERS Safety Report 4959144-8 (Version None)
Quarter: 2006Q1

REPORT INFORMATION
  Report Type: 
  Country: None (occurrence: None)
  Receive Date: 20060127
  Receipt Date: 20050224
  Transmission Date: 20060701
  Serious: Yes (Hospitalization)
  Sender: FDA-Public Use
  Company Number: 05-02-0311

PATIENT
  Age: 27 Year
  Sex: Male

DRUGS (1)
  1. CLOZAPINE [Suspect]
     Dosage: 700MG QD, ORAL
     Route: 048
     Dates: start: 20030801, end: 20050101

REACTIONS (2)
  - INFLUENZA [None]
  - SURGERY [None]
